FAERS Safety Report 8318072-0 (Version None)
Quarter: 2012Q2

REPORT INFORMATION
  Report Type: 
  Country: None (occurrence: None)
  Receive Date: 20120427
  Receipt Date: 20120425
  Transmission Date: 20120825
  Serious: Yes (Hospitalization)
  Sender: FDA-Public Use
  Company Number: US-JNJFOC-20120300255

PATIENT
  Age: 55 Year
  Sex: Female
  Weight: 84.37 kg

DRUGS (14)
  1. EXTRA STRENGTH TYLENOL [Suspect]
     Indication: BREAKTHROUGH PAIN
     Route: 048
     Dates: end: 20111031
  2. ANTI-HYPERTENSIVE [Concomitant]
     Indication: BLOOD PRESSURE
     Route: 065
  3. OTHER DRUGS (UNSPECIFIED) [Concomitant]
     Route: 065
  4. OTHER DRUGS (UNSPECIFIED) [Concomitant]
     Route: 065
  5. OTHER DRUGS (UNSPECIFIED) [Concomitant]
     Indication: GASTRIC DISORDER
     Route: 065
  6. POTASSIUM CHLORIDE [Concomitant]
     Indication: MINERAL SUPPLEMENTATION
     Route: 065
  7. LORTAB [Suspect]
     Indication: ANALGESIC THERAPY
  8. EXTRA STRENGTH TYLENOL [Suspect]
     Route: 048
  9. LASIX [Concomitant]
     Indication: DIURETIC THERAPY
     Route: 065
  10. OTHER DRUGS (UNSPECIFIED) [Concomitant]
     Indication: PRODUCT USED FOR UNKNOWN INDICATION
     Route: 065
  11. ACETAMINOPHEN [Suspect]
     Route: 048
  12. METOPROLOL TARTRATE [Concomitant]
     Indication: HYPERTENSION
     Route: 065
  13. FLEXERIL [Concomitant]
     Indication: BACK DISORDER
     Route: 065
  14. ACETAMINOPHEN [Suspect]
     Indication: BREAKTHROUGH PAIN
     Route: 048
     Dates: end: 20111031

REACTIONS (3)
  - LIVER INJURY [None]
  - TOXICITY TO VARIOUS AGENTS [None]
  - SWELLING [None]
